FAERS Safety Report 12924467 (Version 2)
Quarter: 2016Q4

REPORT INFORMATION
  Report Type: Report from Study
  Country: US (occurrence: US)
  Receive Date: 20161108
  Receipt Date: 20161117
  Transmission Date: 20170207
  Serious: Yes (Other)
  Sender: FDA-Public Use
  Company Number: US-JNJFOC-20160617163

PATIENT
  Age: 80 Year
  Sex: Female

DRUGS (2)
  1. XARELTO [Suspect]
     Active Substance: RIVAROXABAN
     Indication: ARRHYTHMIA
     Route: 048
     Dates: start: 2016
  2. XARELTO [Suspect]
     Active Substance: RIVAROXABAN
     Indication: ARRHYTHMIA
     Route: 048

REACTIONS (12)
  - Diarrhoea [Not Recovered/Not Resolved]
  - Therapeutic response increased [Unknown]
  - Limb operation [Unknown]
  - Post procedural haemorrhage [Unknown]
  - Abdominal pain upper [Not Recovered/Not Resolved]
  - Headache [Not Recovered/Not Resolved]
  - Cardiac operation [Unknown]
  - Renal impairment [Unknown]
  - Dizziness [Not Recovered/Not Resolved]
  - General physical health deterioration [Unknown]
  - Cerebrovascular accident [Recovered/Resolved]
  - Nausea [Not Recovered/Not Resolved]

NARRATIVE: CASE EVENT DATE: 2015
